FAERS Safety Report 15555323 (Version 1)
Quarter: 2018Q4

REPORT INFORMATION
  Report Type: Spontaneous
  Country: CN (occurrence: CN)
  Receive Date: 20181026
  Receipt Date: 20181026
  Transmission Date: 20190205
  Serious: Yes (Death)
  Sender: FDA-Public Use
  Company Number: CN-MYLANLABS-2018M1077532

PATIENT
  Age: 7 Year
  Sex: Male

DRUGS (14)
  1. DOXORUBICIN [Suspect]
     Active Substance: DOXORUBICIN
     Indication: BURKITT^S LEUKAEMIA
     Dosage: ADMINISTERED OVER A PERIOD OF 2 HOURS ON DAY 2 AND 3
     Route: 042
  2. IFOSFAMIDE. [Suspect]
     Active Substance: IFOSFAMIDE
     Indication: BURKITT^S LEUKAEMIA
     Dosage: ADMINISTERED OVER A PERIOD OF 2 HOURS ON DAY 1 TO DAY 5
     Route: 042
  3. METHOTREXATE. [Suspect]
     Active Substance: METHOTREXATE
     Indication: BURKITT^S LEUKAEMIA
     Dosage: ADMINISTERED OVER A PERIOD OF 24 HOURS ON DAY 1
     Route: 042
  4. CYCLOPHOSPHAMIDE. [Suspect]
     Active Substance: CYCLOPHOSPHAMIDE
     Dosage: ADMINISTERED OVER A PERIOD OF 1 HOUR ON DAY 2, 3 AND 4
     Route: 042
  5. ETOPOSIDE. [Suspect]
     Active Substance: ETOPOSIDE
     Indication: BURKITT^S LEUKAEMIA
     Dosage: ADMINISTERED OVER A PERIOD OF 2 HOURS ON DAY 3 TO DAY 5
     Route: 042
  6. CYTARABINE. [Suspect]
     Active Substance: CYTARABINE
     Route: 037
  7. PREDNISONE. [Suspect]
     Active Substance: PREDNISONE
     Indication: BURKITT^S LEUKAEMIA
     Dosage: ON DAY 1 TO 7
     Route: 048
  8. CYCLOPHOSPHAMIDE. [Suspect]
     Active Substance: CYCLOPHOSPHAMIDE
     Indication: BURKITT^S LEUKAEMIA
     Dosage: ADMINISTERED OVER A PERIOD OF 2 HOURS ON DAY 1
     Route: 042
  9. CYTARABINE. [Suspect]
     Active Substance: CYTARABINE
     Indication: BURKITT^S LEUKAEMIA
     Dosage: ADMINISTERED OVER A PERIOD OF 3 HOURS ON DAY 4
     Route: 042
  10. MESNA MYLAN [Suspect]
     Active Substance: MESNA
     Indication: BURKITT^S LEUKAEMIA
     Dosage: AT 0, +4 AND +8 HOURS
     Route: 065
  11. METHOTREXATE. [Suspect]
     Active Substance: METHOTREXATE
     Route: 037
  12. DEXAMETHASONE. [Suspect]
     Active Substance: DEXAMETHASONE
     Indication: BURKITT^S LEUKAEMIA
     Route: 037
  13. VINDESINE [Suspect]
     Active Substance: VINDESINE
     Indication: BURKITT^S LEUKAEMIA
     Dosage: ON DAY 1
     Route: 042
  14. RITUXIMAB. [Suspect]
     Active Substance: RITUXIMAB
     Indication: BURKITT^S LEUKAEMIA
     Route: 065

REACTIONS (3)
  - Venous thrombosis [Unknown]
  - Mouth ulceration [Unknown]
  - Respiratory tract infection [Fatal]
